FAERS Safety Report 7924038-2 (Version None)
Quarter: 2011Q4

REPORT INFORMATION
  Report Type: 
  Country: None (occurrence: None)
  Receive Date: 20111117
  Receipt Date: 20110211
  Transmission Date: 20120403
  Serious: No
  Sender: FDA-Public Use
  Company Number: US-AMGEN-USASP2011007553

PATIENT
  Age: 53 Year
  Sex: Female

DRUGS (1)
  1. ENBREL [Suspect]
     Indication: RHEUMATOID ARTHRITIS
     Dosage: 50 MG, QWK
     Dates: start: 20100801, end: 20101101

REACTIONS (6)
  - INFLUENZA LIKE ILLNESS [None]
  - VOMITING [None]
  - BODY TINEA [None]
  - VULVOVAGINAL MYCOTIC INFECTION [None]
  - FEELING OF BODY TEMPERATURE CHANGE [None]
  - ORAL HERPES [None]
